FAERS Safety Report 16408919 (Version 2)
Quarter: 2019Q2

REPORT INFORMATION
  Report Type: Report from Study
  Country: DE (occurrence: DE)
  Receive Date: 20190610
  Receipt Date: 20190617
  Transmission Date: 20190711
  Serious: Yes (Hospitalization)
  Sender: FDA-Public Use
  Company Number: DE-ROCHE-2331405

PATIENT
  Age: 61 Year
  Sex: Female
  Weight: 45 kg

DRUGS (8)
  1. CHLORHEXIDINE [Concomitant]
     Active Substance: CHLORHEXIDINE
     Indication: CANDIDA INFECTION
     Route: 065
     Dates: start: 20180806
  2. OMNI BIOTIC 6 [Concomitant]
     Indication: FLATULENCE
     Route: 065
     Dates: start: 20180201
  3. MAGNESIA [MAGNESIUM HYDROXIDE] [Concomitant]
     Active Substance: MAGNESIUM HYDROXIDE
     Indication: MUSCLE SPASMS
     Route: 065
     Dates: start: 20180414
  4. GENTIANA LUTEA TINCTURE [Concomitant]
     Route: 065
     Dates: start: 201803
  5. COBIMETINIB. [Suspect]
     Active Substance: COBIMETINIB
     Indication: METASTATIC MALIGNANT MELANOMA
     Dosage: DATE OF MOST RECENT DOSE (40 MG) OF COBIMETINIB PRIOR TO AE ONSET 29/MAY/2019
     Route: 048
     Dates: start: 20170510
  6. DERMATOP [Concomitant]
     Active Substance: PREDNICARBATE
     Indication: RASH
     Route: 065
     Dates: start: 20170525
  7. BLINDED ATEZOLIZUMAB [Suspect]
     Active Substance: ATEZOLIZUMAB
     Indication: METASTATIC MALIGNANT MELANOMA
     Dosage: DATE OF MOST RECENT DOSE OF BLINDED ATEZOLIZUMAB PRIOR TO AE ONSET 23/MAY/2019
     Route: 042
     Dates: start: 20170607
  8. VEMURAFENIB. [Suspect]
     Active Substance: VEMURAFENIB
     Indication: METASTATIC MALIGNANT MELANOMA
     Dosage: DATE OF MOST RECENT DOSE OF VEMURAFENIB PRIOR TO AE ONSET 22/NOV/2017
     Route: 048
     Dates: start: 20170510

REACTIONS (1)
  - Erysipelas [Not Recovered/Not Resolved]

NARRATIVE: CASE EVENT DATE: 20190530
